FAERS Safety Report 21153039 (Version 1)
Quarter: 2022Q3

REPORT INFORMATION
  Report Type: Spontaneous
  Country: US (occurrence: US)
  Receive Date: 20220730
  Receipt Date: 20220730
  Transmission Date: 20221027
  Serious: No
  Sender: FDA-Public Use
  Company Number: US-SA-SAC20220727000269

PATIENT
  Sex: Female

DRUGS (8)
  1. DUPIXENT [Suspect]
     Active Substance: DUPILUMAB
     Indication: Dermatitis atopic
     Dosage: 300MG, QOW
     Route: 058
     Dates: start: 202202
  2. SKYRIZI [Concomitant]
     Active Substance: RISANKIZUMAB-RZAA
  3. SORIATANE [Concomitant]
     Active Substance: ACITRETIN
  4. GABAPENTIN [Concomitant]
     Active Substance: GABAPENTIN
  5. VALTREX [Concomitant]
     Active Substance: VALACYCLOVIR HYDROCHLORIDE
  6. CRESTOR [Concomitant]
     Active Substance: ROSUVASTATIN CALCIUM
  7. CLOBETASOL PROPIONATE [Concomitant]
     Active Substance: CLOBETASOL PROPIONATE
  8. METOPROLOL TARTRATE [Concomitant]
     Active Substance: METOPROLOL TARTRATE

REACTIONS (1)
  - Drug ineffective [Unknown]
